FAERS Safety Report 8379002-9 (Version None)
Quarter: 2012Q2

REPORT INFORMATION
  Report Type: 
  Country: None (occurrence: None)
  Receive Date: 20120523
  Receipt Date: 20120417
  Transmission Date: 20120825
  Serious: No
  Sender: FDA-Public Use
  Company Number: US-PFIZER INC-2012122665

PATIENT

DRUGS (2)
  1. EFFEXOR XR [Suspect]
     Dosage: 1 150 MG CAPSULES A DAY
  2. EFFEXOR XR [Suspect]
     Dosage: 2 TO 3 75 MG  CAPSULES A DAY

REACTIONS (1)
  - HYPERHIDROSIS [None]
